FAERS Safety Report 6523129-0 (Version None)
Quarter: 2009Q4

REPORT INFORMATION
  Report Type: 
  Country: None (occurrence: None)
  Receive Date: 20091222
  Receipt Date: 20091207
  Transmission Date: 20100525
  Serious: Yes (Hospitalization, Other)
  Sender: FDA-Public Use
  Company Number: AUR-APL-2009-01610

PATIENT
  Age: 68 Year
  Sex: Male
  Weight: 75 kg

DRUGS (7)
  1. SIMVASTATIN [Suspect]
     Dosage: 40MG - DAILY
  2. LIPITOR [Suspect]
     Dosage: 20-80MG - DAILY
  3. AMLODIPINE [Concomitant]
  4. ATENOLOL [Concomitant]
  5. LISINOPRIL [Concomitant]
  6. GLUCOPHAGE SR [Concomitant]
  7. ACETYLSALICYLIC ACID SRT [Concomitant]

REACTIONS (4)
  - ANGIOPLASTY [None]
  - CORONARY ARTERY BYPASS [None]
  - DRUG INTOLERANCE [None]
  - MYALGIA [None]
